FAERS Safety Report 13186790 (Version 1)
Quarter: 2017Q1

REPORT INFORMATION
  Report Type: Spontaneous
  Country: US (occurrence: US)
  Receive Date: 20170206
  Receipt Date: 20170206
  Transmission Date: 20170428
  Serious: Yes (Other)
  Sender: FDA-Public Use
  Company Number: US-AMGEN-USASP2017016496

PATIENT
  Age: 60 Year
  Sex: Female

DRUGS (2)
  1. ENBREL [Suspect]
     Active Substance: ETANERCEPT
     Dosage: UNK
     Route: 065
     Dates: start: 201611
  2. ENBREL [Suspect]
     Active Substance: ETANERCEPT
     Indication: RHEUMATOID ARTHRITIS
     Dosage: UNK
     Route: 065
     Dates: start: 201609, end: 201610

REACTIONS (8)
  - Injection site pain [Unknown]
  - Drug effect decreased [Unknown]
  - Feeling hot [Unknown]
  - Injection site urticaria [Unknown]
  - Depressed mood [Unknown]
  - Cataract operation [Unknown]
  - Rheumatoid arthritis [Unknown]
  - Flushing [Unknown]

NARRATIVE: CASE EVENT DATE: 2016
